FAERS Safety Report 8308316-3 (Version None)
Quarter: 2012Q2

REPORT INFORMATION
  Report Type: 
  Country: None (occurrence: None)
  Receive Date: 20120424
  Receipt Date: 20120418
  Transmission Date: 20120825
  Serious: Yes (Other)
  Sender: FDA-Public Use
  Company Number: US-PFIZER INC-2012096867

PATIENT
  Sex: Female
  Weight: 50 kg

DRUGS (7)
  1. XANAX [Suspect]
     Indication: ANXIETY
     Dosage: 3 MG, 2X/DAY
     Route: 048
     Dates: start: 20110512, end: 20110501
  2. XANAX [Suspect]
     Indication: BIPOLAR DISORDER
  3. NEOSPORIN [Suspect]
     Dosage: UNK
     Dates: start: 20120101
  4. CALCITONIN, SALMON [Concomitant]
     Indication: OSTEOPOROSIS
     Dosage: UNK
     Route: 045
  5. PLENDIL [Concomitant]
     Indication: HYPERTENSION
     Dosage: UNK
  6. LYRICA [Suspect]
     Indication: FIBROMYALGIA
     Dosage: 75 MG, 2X/DAY
     Route: 048
     Dates: start: 20100101
  7. XANAX [Suspect]
     Indication: PANIC ATTACK
     Dosage: 3 MG, AS NEEDED
     Route: 048
     Dates: start: 20110501

REACTIONS (9)
  - RASH ERYTHEMATOUS [None]
  - BIPOLAR DISORDER [None]
  - DRUG HYPERSENSITIVITY [None]
  - PRURITUS [None]
  - SWELLING [None]
  - ARTHROPOD BITE [None]
  - SCAR [None]
  - ANXIETY [None]
  - PANIC ATTACK [None]
